FAERS Safety Report 6735471-9 (Version None)
Quarter: 2010Q2

REPORT INFORMATION
  Report Type: 
  Country: None (occurrence: None)
  Receive Date: 20100521
  Receipt Date: 20100517
  Transmission Date: 20101027
  Serious: Yes (Death, Life-Threatening, Other)
  Sender: FDA-Public Use
  Company Number: JP-BAYER-200914819BYL

PATIENT
  Age: 61 Year
  Sex: Male
  Weight: 63 kg

DRUGS (13)
  1. NEXAVAR [Suspect]
     Indication: HEPATIC NEOPLASM MALIGNANT
     Dosage: TOTAL DAILY DOSE: 800 MG  UNIT DOSE: 200 MG
     Route: 048
     Dates: start: 20090902, end: 20090908
  2. NEXAVAR [Suspect]
     Dosage: UNIT DOSE: 200 MG
     Route: 048
     Dates: start: 20090909, end: 20091112
  3. NEXAVAR [Suspect]
     Dosage: UNIT DOSE: 200 MG
     Route: 048
     Dates: start: 20090805, end: 20090902
  4. PARIET [Concomitant]
     Dosage: SINCE BEFORE ADMINISTRATION
     Route: 048
  5. HEPAACT [Concomitant]
     Dosage: SICNE BEFORE ADMINISTRATION
     Route: 048
  6. NOVOLIN R [Concomitant]
     Dosage: SINCE BEFORE ADMINISTRATION, SLIDE SCALE
     Route: 058
  7. LANTUS [Concomitant]
     Dosage: SINCE BEFORE ADMINISTRATION, 6-10U/DAY
     Route: 058
  8. MUCOSOLVAN [Concomitant]
     Dosage: SINCE  BEFORE ADMINISTRATION
     Route: 048
  9. PROPETO [Concomitant]
     Indication: PROPHYLAXIS
     Route: 061
     Dates: start: 20090805
  10. DUROTEP [Concomitant]
     Indication: HEPATIC NEOPLASM MALIGNANT
     Route: 062
     Dates: start: 20091019, end: 20091117
  11. OXINORM [Concomitant]
     Indication: HEPATIC NEOPLASM MALIGNANT
     Dosage: UNIT DOSE: 0.5 MG
     Route: 048
     Dates: start: 20091021, end: 20091112
  12. TS 1 [Concomitant]
     Route: 048
     Dates: start: 20091026, end: 20091112
  13. ATARAX [Concomitant]
     Indication: INSOMNIA
     Dosage: UNIT DOSE: 25 MG
     Route: 042
     Dates: start: 20091113, end: 20091114

REACTIONS (13)
  - ABDOMINAL PAIN UPPER [None]
  - ASCITES [None]
  - BACK PAIN [None]
  - GASTRITIS [None]
  - HEPATIC FAILURE [None]
  - HEPATIC NEOPLASM MALIGNANT [None]
  - HYPOPHOSPHATAEMIA [None]
  - INSOMNIA [None]
  - MALAISE [None]
  - MALNUTRITION [None]
  - PULMONARY EMBOLISM [None]
  - PYREXIA [None]
  - RADIATION SKIN INJURY [None]
